FAERS Safety Report 18511932 (Version 1)
Quarter: 2020Q4

REPORT INFORMATION
  Report Type: Spontaneous
  Country: US (occurrence: US)
  Receive Date: 20201117
  Receipt Date: 20201117
  Transmission Date: 20210114
  Serious: Yes (Disabling)
  Sender: FDA-Public Use
  Company Number: None

PATIENT
  Age: 19 Year
  Sex: Male
  Weight: 81 kg

DRUGS (1)
  1. PAROEX CHLORHEXIDINE GLUCONATE [Suspect]
     Active Substance: CHLORHEXIDINE GLUCONATE
     Indication: TOOTH EXTRACTION
     Dosage: ?          QUANTITY:0.5 OUNCE(S);?
     Route: 048

REACTIONS (10)
  - Oral infection [None]
  - Dry mouth [None]
  - Recalled product administered [None]
  - Transmission of an infectious agent via product [None]
  - Oropharyngeal pain [None]
  - Product contamination microbial [None]
  - Insomnia [None]
  - Oral pain [None]
  - Stress [None]
  - Burkholderia infection [None]

NARRATIVE: CASE EVENT DATE: 20191120
